FAERS Safety Report 9038475 (Version 1)
Quarter: 2013Q1

REPORT INFORMATION
  Report Type: Spontaneous
  Country: US (occurrence: US)
  Receive Date: 20130129
  Receipt Date: 20130129
  Transmission Date: 20140127
  Serious: No
  Sender: FDA-Public Use
  Company Number: US-ABBOTT-12P-163-0935245-00

PATIENT
  Age: 48 Year
  Sex: Male
  Weight: 79.45 kg

DRUGS (5)
  1. HUMIRA 40 MG/0.8 ML PEN [Suspect]
     Indication: PSORIATIC ARTHROPATHY
     Dates: start: 20120512, end: 20120512
  2. SULFASALAZINE [Concomitant]
     Indication: PSORIATIC ARTHROPATHY
  3. FISH OIL [Concomitant]
     Indication: SUPPLEMENTATION THERAPY
  4. DICLOFENAC [Concomitant]
     Indication: PSORIATIC ARTHROPATHY
     Dosage: 7 PILLS
  5. DICLOFENAC [Concomitant]
     Dosage: 4 PILLS
     Dates: start: 201205

REACTIONS (5)
  - Dizziness [Recovered/Resolved]
  - Dizziness [Recovered/Resolved]
  - Injection site pain [Recovered/Resolved]
  - Heart rate increased [Recovered/Resolved]
  - Back pain [Recovered/Resolved]
